FAERS Safety Report 8573588-7 (Version None)
Quarter: 2012Q3

REPORT INFORMATION
  Report Type: 
  Country: None (occurrence: None)
  Receive Date: 20120806
  Receipt Date: 20120725
  Transmission Date: 20120928
  Serious: Yes (Hospitalization)
  Sender: FDA-Public Use
  Company Number: CA-GLAXOSMITHKLINE-A0988146A

PATIENT
  Age: 44 Year
  Sex: Male

DRUGS (3)
  1. NICORETTE [Suspect]
     Dosage: 88MG PER DAY
     Route: 002
  2. WELLBUTRIN XL [Suspect]
     Dosage: 300MG TWICE PER DAY
     Route: 048
  3. NICORETTE [Suspect]
     Route: 002

REACTIONS (9)
  - NICOTINE DEPENDENCE [None]
  - HEART RATE ABNORMAL [None]
  - CONFUSIONAL STATE [None]
  - INTENTIONAL DRUG MISUSE [None]
  - VISION BLURRED [None]
  - OVERDOSE [None]
  - SPEECH DISORDER [None]
  - CONVULSION [None]
  - PRODUCT QUALITY ISSUE [None]
